FAERS Safety Report 8099298-0 (Version None)
Quarter: 2012Q1

REPORT INFORMATION
  Report Type: 
  Country: None (occurrence: None)
  Receive Date: 20120131
  Receipt Date: 20120130
  Transmission Date: 20120608
  Serious: Yes (Other)
  Sender: FDA-Public Use
  Company Number: US-JNJFOC-20120107840

PATIENT
  Age: 14 Year
  Sex: Female

DRUGS (4)
  1. RIFAMPIN [Concomitant]
     Route: 065
  2. DORIBAX [Suspect]
     Dosage: INFUSED OVER 4 HOURS EVERY 8 HOURS
     Route: 041
  3. CHOLESTIN [Concomitant]
     Route: 065
  4. DORIBAX [Suspect]
     Indication: PRODUCT USED FOR UNKNOWN INDICATION
     Route: 041

REACTIONS (2)
  - CHOLECYSTITIS [None]
  - OFF LABEL USE [None]
